FAERS Safety Report 5153929-3 (Version None)
Quarter: 2006Q4

REPORT INFORMATION
  Report Type: 
  Country: None (occurrence: None)
  Receive Date: 20061120
  Receipt Date: 20061012
  Transmission Date: 20070319
  Serious: Yes (Death)
  Sender: FDA-Public Use
  Company Number: US-BAYER-200616032BWH

PATIENT
  Age: 29 Year
  Sex: Male

DRUGS (9)
  1. CIPRO [Suspect]
     Indication: DRUG USE FOR UNKNOWN INDICATION
     Route: 048
  2. CYCLOSPORINE [Concomitant]
     Dosage: TOTAL DAILY DOSE: 450 MG  UNIT DOSE: 225 MG
     Route: 048
  3. ACYCLOVIR [Concomitant]
     Dosage: TOTAL DAILY DOSE: 800 MG
     Route: 048
  4. DIFLUCAN [Concomitant]
     Dosage: TOTAL DAILY DOSE: 400 MG
     Route: 048
  5. PENICILLIN [Concomitant]
     Dosage: TOTAL DAILY DOSE: 1000 MG
     Route: 048
  6. PEPCID [Concomitant]
     Dosage: TOTAL DAILY DOSE: 40 MG
     Route: 048
  7. MAGNESIUM OXIDE [Concomitant]
     Dosage: TOTAL DAILY DOSE: 2400 MG
     Route: 048
  8. TOPROL-XL [Concomitant]
     Dosage: TOTAL DAILY DOSE: 100 MG
     Route: 048
  9. OXYCODONE HCL [Concomitant]

REACTIONS (5)
  - DEATH [None]
  - GINGIVAL BLEEDING [None]
  - HAEMOGLOBIN DECREASED [None]
  - HEADACHE [None]
  - THROMBOCYTOPENIA [None]
